FAERS Safety Report 10312815 (Version 1)
Quarter: 2014Q3

REPORT INFORMATION
  Report Type: Spontaneous
  Country: DE (occurrence: None)
  Receive Date: 20140716
  Receipt Date: 20140716
  Transmission Date: 20150326
  Serious: Yes (Hospitalization, Other)
  Sender: FDA-Public Use
  Company Number: FK201402720

PATIENT
  Age: 72 Year
  Sex: Female

DRUGS (1)
  1. ACICLOVIR (MANUFACTURER UNKNOWN) (ACICLOVIR) (ACICLOVIR) [Suspect]
     Active Substance: ACYCLOVIR
     Indication: HERPES ZOSTER
     Dosage: 800 MG, 5 IN 1 D, ORAL
     Route: 048

REACTIONS (5)
  - Renal tubular disorder [None]
  - Incorrect dose administered [None]
  - Crystal nephropathy [None]
  - Nephropathy toxic [None]
  - Renal failure acute [None]
